FAERS Safety Report 8358044-3 (Version None)
Quarter: 2012Q2

REPORT INFORMATION
  Report Type: 
  Country: None (occurrence: None)
  Receive Date: 20120514
  Receipt Date: 20120505
  Transmission Date: 20120825
  Serious: Yes (Other)
  Sender: FDA-Public Use
  Company Number: RU-ABBOTT-12P-251-0933249-00

PATIENT
  Age: 7 Year

DRUGS (2)
  1. SEVOFLURANE [Suspect]
     Indication: GENERAL ANAESTHESIA
     Route: 055
     Dates: start: 20120428, end: 20120428
  2. FENTANYL-100 [Concomitant]
     Indication: ANAESTHESIA
     Dates: start: 20120428, end: 20120428

REACTIONS (1)
  - PULMONARY OEDEMA [None]
